FAERS Safety Report 9223006 (Version 1)
Quarter: 2013Q2

REPORT INFORMATION
  Report Type: Spontaneous
  Country: IE (occurrence: IE)
  Receive Date: 20130410
  Receipt Date: 20130410
  Transmission Date: 20140414
  Serious: Yes (Other)
  Sender: FDA-Public Use
  Company Number: PHBS2008IE006945

PATIENT
  Age: 37 Year
  Sex: Female

DRUGS (4)
  1. CLOZARIL [Suspect]
     Indication: SCHIZOPHRENIA
     Dosage: UNK
     Dates: start: 20060411
  2. HYOSCINE [Concomitant]
     Indication: SALIVARY HYPERSECRETION
     Dosage: 1 DF, BID
     Route: 048
  3. SERTRALINE [Concomitant]
     Dosage: 50 MG, BID
     Route: 048
  4. SENOKOT [Concomitant]

REACTIONS (2)
  - Haemoglobin increased [Recovered/Resolved]
  - Platelet count decreased [Unknown]
